FAERS Safety Report 5156388-X (Version None)
Quarter: 2006Q4

REPORT INFORMATION
  Report Type: 
  Country: None (occurrence: None)
  Receive Date: 20061114
  Receipt Date: 20061026
  Transmission Date: 20070319
  Serious: Yes (Hospitalization)
  Sender: FDA-Public Use
  Company Number: DSA_28919_2006

PATIENT
  Age: 57 Year
  Sex: Male

DRUGS (4)
  1. ATIVAN [Suspect]
     Dosage: DF,
     Dates: start: 20060301, end: 20060301
  2. STUDY DRUG (IL13-PE38QQR V GLIADEL) [Suspect]
     Indication: GLIOBLASTOMA MULTIFORME
     Dosage: DF,
     Dates: start: 20051015, end: 20051019
  3. MORPHINE [Concomitant]
  4. ANTIBIOTICS [Concomitant]

REACTIONS (16)
  - AGITATION [None]
  - BLOOD POTASSIUM DECREASED [None]
  - BRAIN OEDEMA [None]
  - DECREASED APPETITE [None]
  - DEPRESSED LEVEL OF CONSCIOUSNESS [None]
  - DISTRACTIBILITY [None]
  - FRUSTRATION [None]
  - HALLUCINATION, VISUAL [None]
  - HEART RATE DECREASED [None]
  - KARNOFSKY SCALE WORSENED [None]
  - MENTAL STATUS CHANGES [None]
  - MIOSIS [None]
  - MUSCULAR WEAKNESS [None]
  - NARCOTIC INTOXICATION [None]
  - PARANOIA [None]
  - POSTOPERATIVE WOUND INFECTION [None]
